FAERS Safety Report 19525066 (Version 7)
Quarter: 2021Q3

REPORT INFORMATION
  Report Type: Report from Study
  Country: CN (occurrence: CN)
  Receive Date: 20210713
  Receipt Date: 20210904
  Transmission Date: 20211014
  Serious: Yes (Hospitalization)
  Sender: FDA-Public Use
  Company Number: CN-ROCHE-2851757

PATIENT
  Age: 57 Year
  Sex: Male
  Weight: 69 kg

DRUGS (14)
  1. FUROSEMIDE. [Concomitant]
     Active Substance: FUROSEMIDE
  2. AMBROXOL [Concomitant]
     Active Substance: AMBROXOL
     Dates: start: 20210616, end: 20210701
  3. COBAMAMIDE [Concomitant]
     Active Substance: COBAMAMIDE
     Dates: start: 20210616, end: 20210701
  4. ATEZOLIZUMAB. [Suspect]
     Active Substance: ATEZOLIZUMAB
     Indication: HEPATOCELLULAR CARCINOMA
     Dosage: ON DAY 1 OF EACH 21?DAY CYCLE.?ON 03/JUN/2021, HE RECEIVED MOST RECENT DOSE OF ATEZOLZIUMAB (1200 MG
     Route: 042
     Dates: start: 20210603
  5. BEVACIZUMAB. [Suspect]
     Active Substance: BEVACIZUMAB
     Indication: HEPATOCELLULAR CARCINOMA
     Dosage: ON DAY 1 OF EACH 21?DAY CYCLE?ON 03/JUN/2021, HE RECEIVED MOST RECENT DOSE OF BEVACIZUMAB (1035 MG)
     Route: 042
     Dates: start: 20210603
  6. DOLASETRON [Concomitant]
     Active Substance: DOLASETRON
     Dates: start: 20210616, end: 20210628
  7. DOXOFYLLINE [Concomitant]
     Active Substance: DOXOFYLLINE
     Dates: start: 20210616, end: 20210701
  8. SODIUM GLYCEROPHOSPHATE [Concomitant]
     Active Substance: SODIUM GLYCEROPHOSPHATE
     Dates: start: 20210617, end: 20210617
  9. INSULIN [Concomitant]
     Active Substance: INSULIN NOS
     Dates: start: 20210616, end: 20210619
  10. CALCIUM GLUCONATE. [Concomitant]
     Active Substance: CALCIUM GLUCONATE
     Dates: start: 20210616, end: 20210620
  11. GLUTAMINE [Concomitant]
     Active Substance: GLUTAMINE
     Dates: start: 20210616, end: 20210619
  12. PENTAZOCINE [Concomitant]
     Active Substance: PENTAZOCINE
     Indication: ANALGESIC THERAPY
     Dates: start: 20210616, end: 20210617
  13. SODIUM CHLORIDE. [Concomitant]
     Active Substance: SODIUM CHLORIDE
     Dates: start: 20210616, end: 20210630
  14. HUMAN FIBRINOGEN [Concomitant]
     Active Substance: FIBRINOGEN HUMAN
     Dates: start: 20210621, end: 20210629

REACTIONS (1)
  - Immune-mediated encephalitis [Not Recovered/Not Resolved]

NARRATIVE: CASE EVENT DATE: 20210610
